FAERS Safety Report 18372423 (Version 3)
Quarter: 2021Q1

REPORT INFORMATION
  Report Type: Spontaneous
  Country: US (occurrence: US)
  Receive Date: 20201012
  Receipt Date: 20210120
  Transmission Date: 20210419
  Serious: No
  Sender: FDA-Public Use
  Company Number: US-PFIZER INC-2020383977

PATIENT
  Age: 11 Year
  Sex: Male
  Weight: 28.12 kg

DRUGS (2)
  1. GENOTROPIN [Suspect]
     Active Substance: SOMATROPIN
     Dosage: 1.0MG BY INJECTION ALTERNATING WITH 1.2MG BY INJECTION EVERY DAY
     Dates: start: 202007
  2. GENOTROPIN [Suspect]
     Active Substance: SOMATROPIN
     Indication: GROWTH RETARDATION
     Dosage: 1.0MG BY INJECTION ALTERNATING WITH 1.2MG BY INJECTION EVERY DAY
     Dates: start: 202007

REACTIONS (2)
  - Drug dose omission by device [Unknown]
  - Wrong technique in device usage process [Unknown]

NARRATIVE: CASE EVENT DATE: 20200930
